FAERS Safety Report 14599407 (Version 1)
Quarter: 2018Q1

REPORT INFORMATION
  Report Type: Spontaneous
  Country: US (occurrence: US)
  Receive Date: 20180303
  Receipt Date: 20180303
  Transmission Date: 20180509
  Serious: Yes (Other)
  Sender: FDA-Public Use
  Company Number: None

PATIENT
  Age: 40 Year
  Sex: Female
  Weight: 85.5 kg

DRUGS (2)
  1. LEVROTHYROXINE [Concomitant]
  2. MIRALAX [Suspect]
     Active Substance: POLYETHYLENE GLYCOL 3350
     Indication: CONSTIPATION
     Dosage: ?          QUANTITY:1 CAPFULL;?
     Route: 048
     Dates: start: 20090301

REACTIONS (3)
  - Fatigue [None]
  - Weight decreased [None]
  - Sciatica [None]

NARRATIVE: CASE EVENT DATE: 20180303
